FAERS Safety Report 5750366-5 (Version None)
Quarter: 2008Q2

REPORT INFORMATION
  Report Type: 
  Country: None (occurrence: None)
  Receive Date: 20080528
  Receipt Date: 20080516
  Transmission Date: 20081010
  Serious: Yes (Hospitalization)
  Sender: FDA-Public Use
  Company Number: FR-TEVA-171759ISR

PATIENT
  Age: 62 Year
  Sex: Male

DRUGS (8)
  1. CARBOPLATIN [Suspect]
     Route: 042
     Dates: start: 20080211, end: 20080211
  2. FLUOROURACIL [Suspect]
     Route: 042
     Dates: start: 20080214, end: 20080217
  3. ALENDRONATE SODIUM [Concomitant]
     Route: 048
  4. TACROLIMUS [Concomitant]
     Route: 048
  5. AMLODIPINE BESYLATE [Concomitant]
     Route: 048
  6. LOSARTAN/HYDROCHLOROTHIAZIDE [Concomitant]
     Dosage: 50/12.5 MG
     Route: 048
  7. ALLOPURINOL [Concomitant]
     Route: 048
  8. FLUINDIONE [Concomitant]
     Route: 048

REACTIONS (4)
  - CEREBELLAR ATAXIA [None]
  - CONFUSIONAL STATE [None]
  - LOGORRHOEA [None]
  - PERSECUTORY DELUSION [None]
